FAERS Safety Report 6548676-7 (Version None)
Quarter: 2010Q1

REPORT INFORMATION
  Report Type: 
  Country: None (occurrence: None)
  Receive Date: 20100124
  Receipt Date: 20090929
  Transmission Date: 20100710
  Serious: No
  Sender: FDA-Public Use
  Company Number: US-ALLERGAN-0913540US

PATIENT
  Sex: Female

DRUGS (1)
  1. RESTASIS [Suspect]
     Indication: DRY EYE
     Dosage: 1 GTT, BID
     Dates: start: 20090701, end: 20090910

REACTIONS (4)
  - DRUG INEFFECTIVE [None]
  - OROPHARYNGEAL PAIN [None]
  - POSTNASAL DRIP [None]
  - RHINORRHOEA [None]
